FAERS Safety Report 13231950 (Version 4)
Quarter: 2018Q2

REPORT INFORMATION
  Report Type: Spontaneous
  Country: CA (occurrence: CA)
  Receive Date: 20170214
  Receipt Date: 20180615
  Transmission Date: 20180711
  Serious: Yes (Disabling, Other)
  Sender: FDA-Public Use
  Company Number: CA-OTSUKA-2017_003728

PATIENT
  Age: 22 Year
  Sex: Male
  Weight: 102 kg

DRUGS (3)
  1. ABILIFY MAINTENA [Suspect]
     Active Substance: ARIPIPRAZOLE
     Indication: PRODUCT USED FOR UNKNOWN INDICATION
     Dosage: UNK
     Route: 065
  2. LITHIUM. [Concomitant]
     Active Substance: LITHIUM
     Indication: PRODUCT USED FOR UNKNOWN INDICATION
     Dosage: 1050.0 MG, 2 EVERY 1 DAY(S)
     Route: 065
  3. ABILIFY [Suspect]
     Active Substance: ARIPIPRAZOLE
     Indication: PRODUCT USED FOR UNKNOWN INDICATION
     Dosage: 10 MG, QD
     Route: 048
     Dates: start: 20130702, end: 20160530

REACTIONS (7)
  - Phobia [Recovered/Resolved]
  - Sexual dysfunction [Unknown]
  - Self-injurious ideation [Recovered/Resolved]
  - Thinking abnormal [Recovered/Resolved]
  - Gambling disorder [Recovered/Resolved]
  - Weight increased [Unknown]
  - Libido increased [Recovered/Resolved]

NARRATIVE: CASE EVENT DATE: 20131105
